FAERS Safety Report 15845740 (Version 1)
Quarter: 2019Q1

REPORT INFORMATION
  Report Type: Spontaneous
  Country: NL (occurrence: NL)
  Receive Date: 20190120
  Receipt Date: 20190120
  Transmission Date: 20190417
  Serious: Yes (Other)
  Sender: FDA-Public Use
  Company Number: NL-AUROBINDO-AUR-APL-2019-001034

PATIENT
  Sex: Female
  Weight: 60 kg

DRUGS (1)
  1. LEVONORGESTREL+ETHINYLESTRADIOL 150/30 ?G FILM COATED TABLET [Suspect]
     Active Substance: ETHINYL ESTRADIOL\LEVONORGESTREL
     Indication: CONTRACEPTION
     Dosage: 1 DOSAGE FORM
     Route: 048
     Dates: start: 20070701

REACTIONS (4)
  - Mastitis bacterial [Recovered/Resolved]
  - Nausea [Not Recovered/Not Resolved]
  - Vomiting [Not Recovered/Not Resolved]
  - Chloasma [Not Recovered/Not Resolved]
